FAERS Safety Report 6676463-8 (Version None)
Quarter: 2010Q2

REPORT INFORMATION
  Report Type: 
  Country: None (occurrence: None)
  Receive Date: 20100412
  Receipt Date: 20100406
  Transmission Date: 20101027
  Serious: Yes (Death, Other)
  Sender: FDA-Public Use
  Company Number: PHHY2010CA18973

PATIENT
  Sex: Female

DRUGS (2)
  1. CLOZARIL [Suspect]
     Indication: BIPOLAR DISORDER
     Dosage: 250 MG, QD
     Route: 048
     Dates: start: 20100202, end: 20100301
  2. EPIVAL [Concomitant]

REACTIONS (5)
  - BLOOD PRESSURE DECREASED [None]
  - DEATH [None]
  - HAEMATEMESIS [None]
  - OXYGEN SATURATION DECREASED [None]
  - UNRESPONSIVE TO STIMULI [None]
